FAERS Safety Report 19946104 (Version 1)
Quarter: 2021Q4

REPORT INFORMATION
  Report Type: Report from Study
  Country: US (occurrence: US)
  Receive Date: 20211012
  Receipt Date: 20211012
  Transmission Date: 20220303
  Serious: Yes (Other)
  Sender: FDA-Public Use
  Company Number: US-ASTELLAS-2021US038334

PATIENT
  Age: 14 Year
  Sex: Male

DRUGS (3)
  1. GILTERITINIB [Suspect]
     Active Substance: GILTERITINIB
     Indication: Acute myeloid leukaemia refractory
     Dosage: UNK UNK, UNKNOWN FREQ.
     Route: 065
  2. AZACITIDINE [Concomitant]
     Active Substance: AZACITIDINE
     Indication: Acute myeloid leukaemia refractory
     Dosage: UNK UNK, UNKNOWN FREQ.
     Route: 065
  3. FLUDARABINE [Concomitant]
     Active Substance: FLUDARABINE PHOSPHATE
     Indication: Acute myeloid leukaemia refractory
     Dosage: UNK UNK, UNKNOWN FREQ.
     Route: 065

REACTIONS (7)
  - Thrombocytopenia [Unknown]
  - Anaemia [Unknown]
  - Bacteraemia [Unknown]
  - Alpha haemolytic streptococcal infection [Unknown]
  - Febrile neutropenia [Unknown]
  - Tooth discolouration [Unknown]
  - Product administered to patient of inappropriate age [Unknown]
